FAERS Safety Report 22366247 (Version 1)
Quarter: 2023Q2

REPORT INFORMATION
  Report Type: Spontaneous
  Country: US (occurrence: None)
  Receive Date: 20230524
  Receipt Date: 20230524
  Transmission Date: 20230722
  Serious: No
  Sender: FDA-Public Use
  Company Number: None

PATIENT
  Sex: Female
  Weight: 51.75 kg

DRUGS (5)
  1. ISOTRETINOIN [Suspect]
     Active Substance: ISOTRETINOIN
     Indication: Acne cystic
     Dosage: OTHER QUANTITY : 1 TABLET(S);?FREQUENCY : TWICE A DAY;?
     Route: 048
     Dates: start: 20211215, end: 20220815
  2. FISH OIL [Concomitant]
     Active Substance: FISH OIL
  3. Probiotic pills [Concomitant]
  4. IRON [Concomitant]
     Active Substance: IRON
  5. Folic acid supplement [Concomitant]

REACTIONS (8)
  - Joint noise [None]
  - Arthralgia [None]
  - Dry eye [None]
  - Lip dry [None]
  - Erythema [None]
  - Sensitive skin [None]
  - Rash [None]
  - Back pain [None]
